FAERS Safety Report 12460195 (Version 5)
Quarter: 2016Q3

REPORT INFORMATION
  Report Type: Spontaneous
  Country: CA (occurrence: CA)
  Receive Date: 20160613
  Receipt Date: 20160816
  Transmission Date: 20161109
  Serious: Yes (Other)
  Sender: FDA-Public Use
  Company Number: CA-009507513-1604CAN005402

PATIENT
  Age: 66 Year
  Sex: Female
  Weight: 69 kg

DRUGS (6)
  1. KEYTRUDA [Suspect]
     Active Substance: PEMBROLIZUMAB
     Indication: METASTATIC MALIGNANT MELANOMA
     Dosage: 136 MG, Q3W
     Route: 042
     Dates: start: 20160406
  2. KEYTRUDA [Suspect]
     Active Substance: PEMBROLIZUMAB
     Dosage: 136 MG, Q3W
     Route: 042
     Dates: start: 20160630
  3. KEYTRUDA [Suspect]
     Active Substance: PEMBROLIZUMAB
     Dosage: 136 MG, Q3W
     Route: 042
     Dates: start: 20160427
  4. KEYTRUDA [Suspect]
     Active Substance: PEMBROLIZUMAB
     Dosage: 136 MG, Q3W
     Route: 042
     Dates: start: 20160608
  5. KEYTRUDA [Suspect]
     Active Substance: PEMBROLIZUMAB
     Dosage: 136 MG, Q3W
     Route: 042
     Dates: start: 20160720
  6. KEYTRUDA [Suspect]
     Active Substance: PEMBROLIZUMAB
     Dosage: 136 MG, Q3W
     Route: 042
     Dates: start: 20160518

REACTIONS (23)
  - Anxiety [Unknown]
  - Fear [Unknown]
  - Pain [Unknown]
  - Somnolence [Unknown]
  - Immune system disorder [Unknown]
  - Frustration tolerance decreased [Unknown]
  - Back pain [Unknown]
  - Depressed mood [Unknown]
  - Mucosal inflammation [Unknown]
  - Tension [Unknown]
  - Malaise [Unknown]
  - Fatigue [Unknown]
  - Rash [Recovered/Resolved]
  - Anger [Unknown]
  - Pain in extremity [Unknown]
  - Tumour marker increased [Unknown]
  - Emotional disorder [Unknown]
  - Decreased appetite [Unknown]
  - Depression [Unknown]
  - Secondary hypothyroidism [Unknown]
  - Dry mouth [Unknown]
  - Dyspepsia [Unknown]
  - Nausea [Unknown]

NARRATIVE: CASE EVENT DATE: 20160406
